FAERS Safety Report 5981139-6 (Version None)
Quarter: 2008Q4

REPORT INFORMATION
  Report Type: 
  Country: None (occurrence: None)
  Receive Date: 20081205
  Receipt Date: 20081126
  Transmission Date: 20090506
  Serious: Yes (Death)
  Sender: FDA-Public Use
  Company Number: A0734387A

PATIENT
  Age: 60 Year
  Sex: Male
  Weight: 113.6 kg

DRUGS (10)
  1. AVANDIA [Suspect]
     Dosage: 2MG TWICE PER DAY
     Route: 048
     Dates: start: 20020404, end: 20070424
  2. AVANDAMET [Suspect]
     Dosage: 2MG TWICE PER DAY
     Route: 048
     Dates: start: 20021211, end: 20050922
  3. METFORMIN HCL [Concomitant]
     Dates: start: 20020404, end: 20020712
  4. LANTUS [Concomitant]
     Dates: start: 20050930, end: 20070401
  5. AMARYL [Concomitant]
     Dates: start: 20040904, end: 20041019
  6. PAXIL [Concomitant]
     Dates: start: 20021201, end: 20030601
  7. WELLBUTRIN XL [Concomitant]
     Dates: start: 20030930, end: 20040201
  8. PREDNISONE TAB [Concomitant]
     Dates: start: 20040101
  9. TIMOLOL [Concomitant]
     Dates: start: 20020219, end: 20030801
  10. ZOCOR [Concomitant]
     Dates: start: 20060208

REACTIONS (6)
  - ANXIETY [None]
  - CARDIO-RESPIRATORY ARREST [None]
  - HEART INJURY [None]
  - MYOCARDIAL INFARCTION [None]
  - PAIN [None]
  - RENAL DISORDER [None]
